FAERS Safety Report 16418107 (Version 1)
Quarter: 2019Q2

REPORT INFORMATION
  Report Type: Spontaneous
  Country: US (occurrence: US)
  Receive Date: 20190611
  Receipt Date: 20190611
  Transmission Date: 20190711
  Serious: No
  Sender: FDA-Public Use
  Company Number: US-TITAN PHARMACEUTICALS-2019TAN00006

PATIENT
  Sex: Female

DRUGS (3)
  1. PROBUPHINE [Suspect]
     Active Substance: BUPRENORPHINE HYDROCHLORIDE
     Indication: DRUG USE DISORDER
     Dosage: 4 DOSAGE UNITS; ^1 PER 6 MONTHS^
     Route: 059
     Dates: start: 20190207
  2. SUBOXONE [Concomitant]
     Active Substance: BUPRENORPHINE HYDROCHLORIDE\NALOXONE HYDROCHLORIDE
     Route: 048
  3. SUBLOCADE [Concomitant]
     Active Substance: BUPRENORPHINE

REACTIONS (4)
  - Device issue [Unknown]
  - Incision site complication [Unknown]
  - Skin discomfort [Unknown]
  - Expulsion of medication [Unknown]

NARRATIVE: CASE EVENT DATE: 2019
